FAERS Safety Report 19198703 (Version 2)
Quarter: 2021Q2

REPORT INFORMATION
  Report Type: Spontaneous
  Country: US (occurrence: US)
  Receive Date: 20210430
  Receipt Date: 20210511
  Transmission Date: 20210717
  Serious: No
  Sender: FDA-Public Use
  Company Number: US-LUPIN PHARMACEUTICALS INC.-2021-05411

PATIENT
  Sex: Male

DRUGS (1)
  1. SILDENAFIL TABLETS USP, 100 MG [Suspect]
     Active Substance: SILDENAFIL
     Indication: PRODUCT USED FOR UNKNOWN INDICATION
     Dosage: 100 MILLIGRAM
     Route: 048

REACTIONS (4)
  - Eye irritation [Unknown]
  - Corneal irritation [Unknown]
  - Device colour issue [Unknown]
  - Cyanopsia [Recovered/Resolved]

NARRATIVE: CASE EVENT DATE: 202103
